FAERS Safety Report 8128343-9 (Version None)
Quarter: 2012Q1

REPORT INFORMATION
  Report Type: 
  Country: None (occurrence: None)
  Receive Date: 20120210
  Receipt Date: 20120202
  Transmission Date: 20120608
  Serious: Yes (Hospitalization, Other)
  Sender: FDA-Public Use
  Company Number: IE-ROCHE-1037045

PATIENT
  Sex: Female

DRUGS (10)
  1. LUCENTIS [Suspect]
     Route: 050
     Dates: start: 20101104
  2. LUCENTIS [Suspect]
     Route: 050
     Dates: start: 20101125
  3. LUCENTIS [Suspect]
     Route: 050
     Dates: start: 20110617
  4. LUCENTIS [Suspect]
     Route: 050
     Dates: start: 20110715
  5. LUCENTIS [Suspect]
     Route: 050
     Dates: start: 20100909
  6. LUCENTIS [Suspect]
     Route: 050
     Dates: start: 20110525
  7. LUCENTIS [Suspect]
     Route: 050
     Dates: start: 20110828
  8. LUCENTIS [Suspect]
     Indication: PRODUCT USED FOR UNKNOWN INDICATION
     Route: 050
  9. LUCENTIS [Suspect]
     Route: 050
     Dates: start: 20101007
  10. AVASTIN [Concomitant]
     Dates: start: 20101125

REACTIONS (4)
  - INAPPROPRIATE SCHEDULE OF DRUG ADMINISTRATION [None]
  - CEREBROVASCULAR ACCIDENT [None]
  - HEMIPARESIS [None]
  - APHASIA [None]
